FAERS Safety Report 9475607 (Version 1)
Quarter: 2013Q3

REPORT INFORMATION
  Report Type: Report from Study
  Country: IN (occurrence: IN)
  Receive Date: 20130826
  Receipt Date: 20130826
  Transmission Date: 20140515
  Serious: Yes (Death)
  Sender: FDA-Public Use
  Company Number: PHHY2013IN090140

PATIENT
  Sex: 0

DRUGS (2)
  1. MYCOPHENOLIC ACID [Suspect]
     Indication: RENAL TRANSPLANT
     Dosage: 720 MG, UNK
     Dates: start: 20130728
  2. TACROLIMUS [Suspect]
     Indication: RENAL TRANSPLANT
     Dosage: 4 MG, UNK
     Route: 048
     Dates: start: 20130728

REACTIONS (1)
  - Acute coronary syndrome [Fatal]
